FAERS Safety Report 7687271-3 (Version None)
Quarter: 2011Q3

REPORT INFORMATION
  Report Type: 
  Country: None (occurrence: None)
  Receive Date: 20110816
  Receipt Date: 20110803
  Transmission Date: 20111222
  Serious: Yes (Death)
  Sender: FDA-Public Use
  Company Number: JP-MYLANLABS-2011S1016133

PATIENT
  Age: 5 Year
  Sex: Male

DRUGS (7)
  1. CYCLOPHOSPHAMIDE [Suspect]
     Indication: BURKITT'S LYMPHOMA
     Dosage: RECEIVED 6 COURSES; TOTAL DOSE 9 G/M2
     Route: 065
  2. EPIRUBICIN [Suspect]
     Indication: BURKITT'S LYMPHOMA
     Dosage: RECEIVED 6 COURSES; TOTAL DOSE 360 MG/M2
     Route: 065
  3. CYTARABINE [Suspect]
     Indication: BURKITT'S LYMPHOMA
     Dosage: RECEIVED 6 COURSES; TOTAL DOSE 26 G/M2
     Route: 065
  4. PREDNISOLONE [Concomitant]
     Indication: BURKITT'S LYMPHOMA
     Dosage: RECEIVED 6 COURSES
     Route: 065
  5. METHOTREXATE [Suspect]
     Indication: BURKITT'S LYMPHOMA
     Dosage: RECEIVED 6 COURSES; TOTAL DOSE 6 G/M2
     Route: 065
  6. ETOPOSIDE [Suspect]
     Indication: BURKITT'S LYMPHOMA
     Dosage: RECEIVED 6 COURSES; TOTAL DOSE 1.1 G/M2
     Route: 065
  7. VINCRISTINE [Suspect]
     Indication: BURKITT'S LYMPHOMA
     Dosage: RECEIVED 6 COURSES; TOTAL DOSE 3 MG/M2
     Route: 065

REACTIONS (2)
  - CARDIAC FAILURE [None]
  - PULMONARY VENO-OCCLUSIVE DISEASE [None]
